FAERS Safety Report 9083592 (Version 2)
Quarter: 2013Q1

REPORT INFORMATION
  Report Type: Spontaneous
  Country: CA (occurrence: CA)
  Receive Date: 20130130
  Receipt Date: 20130315
  Transmission Date: 20140127
  Serious: Yes (Death)
  Sender: FDA-Public Use
  Company Number: CA-ELI_LILLY_AND_COMPANY-CA201301007842

PATIENT
  Age: 59 Year
  Sex: Male
  Weight: 75 kg

DRUGS (11)
  1. FORTEO [Suspect]
     Indication: OSTEOPOROSIS
     Dosage: 20 UG, QD
     Route: 058
     Dates: start: 201106, end: 20121225
  2. ASPIRIN [Concomitant]
     Dosage: UNK, UNKNOWN
     Route: 065
  3. LIPITOR [Concomitant]
     Dosage: UNK, UNKNOWN
     Route: 065
  4. CALCIUM [Concomitant]
     Dosage: UNK, UNKNOWN
     Route: 065
  5. LOSEC [Concomitant]
     Dosage: UNK, UNKNOWN
     Route: 065
  6. MEDROL [Concomitant]
     Dosage: UNK, UNKNOWN
     Route: 065
  7. NEURONTIN [Concomitant]
     Dosage: UNK, UNKNOWN
     Route: 065
  8. VITAMIN D [Concomitant]
     Dosage: UNK, UNKNOWN
     Route: 065
  9. CYCLOPHOSPHAMIDE [Concomitant]
     Dosage: UNK, UNKNOWN
     Route: 065
  10. IMMUNOGLOBULIN                     /00025201/ [Concomitant]
     Dosage: UNK, UNKNOWN
     Route: 065
  11. RITUXIMAB [Concomitant]
     Indication: MONONEUROPATHY MULTIPLEX
     Dosage: 750 MG, UNK
     Route: 042

REACTIONS (2)
  - Pneumonia influenzal [Fatal]
  - Respiratory failure [Fatal]
